FAERS Safety Report 4295422-6 (Version None)
Quarter: 2004Q1

REPORT INFORMATION
  Report Type: 
  Country: None (occurrence: None)
  Receive Date: 20040212
  Receipt Date: 20031202
  Transmission Date: 20041129
  Serious: Yes (Death)
  Sender: FDA-Public Use
  Company Number: A01200305663

PATIENT
  Age: 68 Year
  Sex: Male

DRUGS (3)
  1. ARIXTRA [Suspect]
     Indication: HIP ARTHROPLASTY
     Dosage: 2.5 MG OD, SUBCUTANEOUS
     Route: 058
     Dates: start: 20030612, end: 20030617
  2. ARIXTRA [Suspect]
     Indication: THROMBOSIS PROPHYLAXIS
     Dosage: 2.5 MG OD, SUBCUTANEOUS
     Route: 058
     Dates: start: 20030612, end: 20030617
  3. PARACETAMOL [Concomitant]

REACTIONS (5)
  - C-REACTIVE PROTEIN INCREASED [None]
  - DRUG INEFFECTIVE [None]
  - FALL [None]
  - GAIT DISTURBANCE [None]
  - PULMONARY EMBOLISM [None]
